FAERS Safety Report 21821899 (Version 1)
Quarter: 2023Q1

REPORT INFORMATION
  Report Type: Report from Study
  Country: CA (occurrence: CA)
  Receive Date: 20230105
  Receipt Date: 20230105
  Transmission Date: 20230418
  Serious: Yes (Other)
  Sender: FDA-Public Use
  Company Number: CA-JNJFOC-20221263462

PATIENT
  Age: 11 Year
  Sex: Male
  Weight: 53.118 kg

DRUGS (1)
  1. REMICADE [Suspect]
     Active Substance: INFLIXIMAB
     Indication: Crohn^s disease
     Dosage: DRUG START DAT ALSO REPORTED AS 17/OCT/2019
     Route: 041
     Dates: start: 20170518

REACTIONS (3)
  - Haematochezia [Unknown]
  - Cough [Unknown]
  - Off label use [Unknown]

NARRATIVE: CASE EVENT DATE: 20170518
